FAERS Safety Report 9722999 (Version 1)
Quarter: 2013Q4

REPORT INFORMATION
  Report Type: Spontaneous
  Country: CA (occurrence: CA)
  Receive Date: 20131202
  Receipt Date: 20131202
  Transmission Date: 20140711
  Serious: Yes (Other)
  Sender: FDA-Public Use
  Company Number: CA-B.I. PHARMACEUTICALS,INC./RIDGEFIELD-2013-BI-39156CN

PATIENT
  Sex: 0

DRUGS (3)
  1. PRADAXA [Suspect]
     Route: 065
  2. WARFARIN [Suspect]
     Route: 065
  3. XARELTO [Suspect]
     Route: 065

REACTIONS (2)
  - Gingival bleeding [Unknown]
  - Drug interaction [Unknown]
